FAERS Safety Report 18883177 (Version 1)
Quarter: 2021Q1

REPORT INFORMATION
  Report Type: Spontaneous
  Country: US (occurrence: US)
  Receive Date: 20210211
  Receipt Date: 20210211
  Transmission Date: 20210420
  Serious: No
  Sender: FDA-Public Use
  Company Number: US-ALXN-A202101832

PATIENT
  Age: 69 Year
  Sex: Male

DRUGS (1)
  1. SOLIRIS [Suspect]
     Active Substance: ECULIZUMAB
     Indication: MYASTHENIA GRAVIS
     Dosage: UNK
     Route: 065
     Dates: start: 202008

REACTIONS (5)
  - Gait disturbance [Recovering/Resolving]
  - Therapeutic product effect decreased [Unknown]
  - Muscular weakness [Recovering/Resolving]
  - Eyelid ptosis [Recovering/Resolving]
  - Muscle fatigue [Recovering/Resolving]
